FAERS Safety Report 15323666 (Version 2)
Quarter: 2018Q4

REPORT INFORMATION
  Report Type: Spontaneous
  Country: US (occurrence: US)
  Receive Date: 20180827
  Receipt Date: 20181005
  Transmission Date: 20190204
  Serious: Yes (Other)
  Sender: FDA-Public Use
  Company Number: US-PRINSTON PHARMACEUTICAL INC.-2018PRN00923

PATIENT
  Age: 69 Year
  Sex: Female
  Weight: 58.96 kg

DRUGS (12)
  1. VALSARTAN. [Suspect]
     Active Substance: VALSARTAN
     Dosage: UNK
  2. UNSPECIFIED THYRIOD MEDICATION [Concomitant]
  3. VALSARTAN (SANDOZ) [Suspect]
     Active Substance: VALSARTAN
     Indication: HYPERTENSION
     Dosage: 80 MG, 1X/DAY
     Route: 048
  4. WARFARIN [Concomitant]
     Active Substance: WARFARIN
  5. METOPROLOL. [Concomitant]
     Active Substance: METOPROLOL
  6. VESICARE [Concomitant]
     Active Substance: SOLIFENACIN SUCCINATE
     Indication: INCONTINENCE
  7. UNSPECIFIED VITAMINS [Concomitant]
     Active Substance: VITAMINS
  8. VALSARTAN. [Suspect]
     Active Substance: VALSARTAN
     Indication: HYPERTENSION
     Dosage: 160 MG, 1X/DAY
     Route: 048
  9. DILTIAZEM. [Concomitant]
     Active Substance: DILTIAZEM
  10. ALLOPURINOL. [Concomitant]
     Active Substance: ALLOPURINOL
     Indication: RENAL IMPAIRMENT
  11. LORATADINE. [Concomitant]
     Active Substance: LORATADINE
  12. LOSARTAN POTASSIUM. [Suspect]
     Active Substance: LOSARTAN POTASSIUM
     Indication: HYPERTENSION
     Dosage: UNK
     Dates: start: 201807

REACTIONS (1)
  - Recurrent cancer [Not Recovered/Not Resolved]

NARRATIVE: CASE EVENT DATE: 201808
